FAERS Safety Report 13954554 (Version 6)
Quarter: 2019Q4

REPORT INFORMATION
  Report Type: Report from Study
  Country: None (occurrence: US)
  Receive Date: 20170911
  Receipt Date: 20191106
  Transmission Date: 20200122
  Serious: Yes (Hospitalization, Other)
  Sender: FDA-Public Use
  Company Number: US-ABBVIE-17K-163-2094862-00

PATIENT
  Age: 54 Year
  Sex: Male

DRUGS (2)
  1. HUMIRA [Suspect]
     Active Substance: ADALIMUMAB
     Indication: CROHN^S DISEASE
     Route: 058
  2. HUMIRA [Suspect]
     Active Substance: ADALIMUMAB
     Route: 058
     Dates: start: 20170818

REACTIONS (8)
  - Rotator cuff syndrome [Unknown]
  - Ankylosing spondylitis [Recovering/Resolving]
  - Migraine [Unknown]
  - Asthenia [Not Recovered/Not Resolved]
  - Crohn^s disease [Recovering/Resolving]
  - Post procedural complication [Not Recovered/Not Resolved]
  - Musculoskeletal disorder [Unknown]
  - Hiatus hernia [Recovered/Resolved]

NARRATIVE: CASE EVENT DATE: 20170731
